FAERS Safety Report 6504254-7 (Version None)
Quarter: 2009Q4

REPORT INFORMATION
  Report Type: 
  Country: None (occurrence: None)
  Receive Date: 20091217
  Receipt Date: 20090924
  Transmission Date: 20100525
  Serious: No
  Sender: FDA-Public Use
  Company Number: US-ABBOTT-09P-163-0599677-00

PATIENT
  Sex: Female

DRUGS (5)
  1. HYTRIN [Suspect]
     Indication: BLADDER SPHINCTER ATONY
  2. HYTRIN [Suspect]
     Dates: end: 20060101
  3. TERAZOSIN HCL [Suspect]
     Indication: BLADDER SPHINCTER ATONY
     Dates: start: 20070101, end: 20070101
  4. PROVENTIL [Concomitant]
     Indication: ASTHMA
     Dosage: UNKNOWN
  5. NORCO [Concomitant]
     Indication: BACK PAIN
     Dosage: UNKNOWN
     Route: 048

REACTIONS (3)
  - DIZZINESS [None]
  - DYSURIA [None]
  - LOSS OF CONSCIOUSNESS [None]
